FAERS Safety Report 25551904 (Version 1)
Quarter: 2025Q3

REPORT INFORMATION
  Report Type: Spontaneous
  Country: EU (occurrence: EU)
  Receive Date: 20250714
  Receipt Date: 20250714
  Transmission Date: 20251021
  Serious: Yes (Death)
  Sender: SERVIER
  Company Number: None

PATIENT

DRUGS (1)
  1. TIBSOVO [Suspect]
     Active Substance: IVOSIDENIB
     Indication: Acute myeloid leukaemia
     Dosage: 1 DF, QD
     Route: 048
     Dates: start: 20230615, end: 20230805

REACTIONS (1)
  - Differentiation syndrome [Fatal]

NARRATIVE: CASE EVENT DATE: 20230805
